FAERS Safety Report 9478338 (Version 1)
Quarter: 2013Q3

REPORT INFORMATION
  Report Type: Report from Study
  Country: US (occurrence: US)
  Receive Date: 20130827
  Receipt Date: 20130827
  Transmission Date: 20140515
  Serious: Yes (Hospitalization, Other)
  Sender: FDA-Public Use
  Company Number: US-JNJFOC-20130812765

PATIENT
  Sex: Male
  Weight: 63.96 kg

DRUGS (2)
  1. REMICADE [Suspect]
     Indication: RHEUMATOID ARTHRITIS
     Route: 042
     Dates: start: 2013, end: 201308
  2. PREDNISONE [Concomitant]
     Route: 065

REACTIONS (3)
  - Abnormal loss of weight [Not Recovered/Not Resolved]
  - Amnesia [Not Recovered/Not Resolved]
  - Hypotension [Unknown]
